FAERS Safety Report 14794912 (Version 5)
Quarter: 2018Q4

REPORT INFORMATION
  Report Type: Report from Study
  Country: DE (occurrence: DE)
  Receive Date: 20180423
  Receipt Date: 20181024
  Transmission Date: 20190204
  Serious: No
  Sender: FDA-Public Use
  Company Number: DE-SHIRE-DE201801410

PATIENT

DRUGS (8)
  1. NATPARA (PARATHYROID HORMONE) [Suspect]
     Active Substance: PARATHYROID HORMONE
     Dosage: 50 ?G, 1X/DAY:QD
     Route: 058
     Dates: start: 20180409
  2. ARCOXIA [Concomitant]
     Active Substance: ETORICOXIB
     Indication: PAIN
  3. VERAPAMIL [Concomitant]
     Active Substance: VERAPAMIL HYDROCHLORIDE
     Indication: ARRHYTHMIA
  4. NATPARA (PARATHYROID HORMONE) [Suspect]
     Active Substance: PARATHYROID HORMONE
     Indication: HYPOPARATHYROIDISM
     Dosage: 50 ?G, 1X/DAY:QD
     Route: 058
     Dates: start: 20180109
  5. NATPARA (PARATHYROID HORMONE) [Suspect]
     Active Substance: PARATHYROID HORMONE
     Indication: OFF LABEL USE
     Dosage: 25 MG, 1X/DAY:QD
     Route: 058
     Dates: start: 20180109
  6. L-THYROXIN [Concomitant]
     Active Substance: LEVOTHYROXINE SODIUM
     Indication: THYROIDECTOMY
  7. FRUBIASE CALCIUM FORTE [Concomitant]
     Indication: HYPOPARATHYROIDISM
  8. CALCITRIOL. [Concomitant]
     Active Substance: CALCITRIOL
     Indication: HYPOPARATHYROIDISM

REACTIONS (9)
  - Bone pain [Recovering/Resolving]
  - Headache [Recovered/Resolved]
  - Back pain [Not Recovered/Not Resolved]
  - Musculoskeletal pain [Recovered/Resolved]
  - Condition aggravated [Unknown]
  - Fatigue [Not Recovered/Not Resolved]
  - Nausea [Recovered/Resolved]
  - Abdominal pain upper [Recovered/Resolved]
  - Off label use [Unknown]

NARRATIVE: CASE EVENT DATE: 20180109
